FAERS Safety Report 11220327 (Version 2)
Quarter: 2015Q3

REPORT INFORMATION
  Report Type: Report from Study
  Country: BR (occurrence: None)
  Receive Date: 20150624
  Receipt Date: 20150716
  Transmission Date: 20151125
  Serious: Yes (Death, Hospitalization)
  Sender: FDA-Public Use
  Company Number: 2015SGN01038

PATIENT
  Age: 72 Year
  Sex: Female
  Weight: 43.9 kg

DRUGS (4)
  1. DOXORUBICIN (DOXORUBICIN) INJECTION [Suspect]
     Active Substance: DOXORUBICIN
     Indication: HODGKIN^S DISEASE
     Dosage: Q14D
     Route: 042
     Dates: start: 20150211, end: 20150513
  2. BRENTUXIMAB VEDOTIN (BRENTUXIMAB VEDOTIN) INJECTION [Suspect]
     Active Substance: BRENTUXIMAB VEDOTIN
     Indication: HODGKIN^S DISEASE
     Dosage: Q14D
     Route: 042
     Dates: start: 20150211, end: 20150513
  3. DACARBAZINE (DACARBAZINE) INJECTION [Suspect]
     Active Substance: DACARBAZINE
     Indication: HODGKIN^S DISEASE
     Dosage: Q14D
     Route: 042
     Dates: start: 20150211, end: 20150513
  4. VINBLASTINE (VINBLASTINE) INJECTION [Suspect]
     Active Substance: VINBLASTINE
     Indication: HODGKIN^S DISEASE
     Dosage: 8.0 MG, Q2WEEKS
     Route: 042
     Dates: start: 20150211, end: 20150513

REACTIONS (3)
  - Sepsis [None]
  - Urinary tract infection [None]
  - Chronic obstructive pulmonary disease [None]

NARRATIVE: CASE EVENT DATE: 20150603
